FAERS Safety Report 8087897-1 (Version None)
Quarter: 2012Q1

REPORT INFORMATION
  Report Type: 
  Country: None (occurrence: None)
  Receive Date: 20120128
  Receipt Date: 20110411
  Transmission Date: 20120608
  Serious: No
  Sender: FDA-Public Use
  Company Number: US-ABBOTT-11P-163-0718082-00

PATIENT
  Sex: Female
  Weight: 50.848 kg

DRUGS (6)
  1. ARAVA [Suspect]
     Indication: PSORIATIC ARTHROPATHY
  2. ENBREL [Suspect]
     Indication: PSORIATIC ARTHROPATHY
     Dates: start: 20101101, end: 20110301
  3. CRESTOR [Concomitant]
     Indication: BLOOD CHOLESTEROL INCREASED
  4. HUMIRA [Suspect]
     Indication: PSORIATIC ARTHROPATHY
     Route: 058
     Dates: start: 20091101, end: 20101101
  5. HUMIRA [Suspect]
     Route: 058
     Dates: start: 20110301
  6. SYNTHROID [Concomitant]
     Indication: HYPOTHYROIDISM

REACTIONS (4)
  - ARTHRALGIA [None]
  - OSTEOARTHRITIS [None]
  - DRUG INEFFECTIVE [None]
  - DRUG RESISTANCE [None]
